FAERS Safety Report 18586646 (Version 1)
Quarter: 2020Q4

REPORT INFORMATION
  Report Type: Spontaneous
  Country: US (occurrence: US)
  Receive Date: 20201207
  Receipt Date: 20201207
  Transmission Date: 20210114
  Serious: Yes (Other)
  Sender: FDA-Public Use
  Company Number: None

PATIENT
  Age: 64 Year
  Sex: Female
  Weight: 63.45 kg

DRUGS (5)
  1. QUERCITIN [Concomitant]
  2. MISOPROSTOL 200 MCG TABLETS, QUANTITY 2 [Suspect]
     Active Substance: MISOPROSTOL
     Indication: BIOPSY ENDOMETRIUM
     Dosage: ?          QUANTITY:2 TABLET(S);OTHER FREQUENCY:6-12 HRS BEFORE TE;?
     Route: 067
     Dates: start: 20201207, end: 20201207
  3. VITAMIN D3 [Concomitant]
     Active Substance: CHOLECALCIFEROL
  4. NALTREXONE [Concomitant]
     Active Substance: NALTREXONE
  5. NRF2 [Concomitant]

REACTIONS (9)
  - Urinary incontinence [None]
  - Chills [None]
  - Pain [None]
  - Asthenia [None]
  - Chest pain [None]
  - Product use issue [None]
  - Tremor [None]
  - Muscle spasms [None]
  - Gastrointestinal motility disorder [None]

NARRATIVE: CASE EVENT DATE: 20201207
